FAERS Safety Report 10637346 (Version 1)
Quarter: 2014Q4

REPORT INFORMATION
  Report Type: Spontaneous
  Country: GB (occurrence: GB)
  Receive Date: 20141208
  Receipt Date: 20141208
  Transmission Date: 20150529
  Serious: Yes (Other)
  Sender: FDA-Public Use
  Company Number: GB-TEVA-527477ISR

PATIENT
  Age: 10 Year
  Sex: Male
  Weight: 16 kg

DRUGS (10)
  1. BACLOFEN. [Concomitant]
     Active Substance: BACLOFEN
     Indication: CEREBRAL PALSY
     Dosage: 700 MCG/DAY
     Route: 037
  2. LEVODOPA [Concomitant]
     Active Substance: LEVODOPA
     Indication: CEREBRAL PALSY
     Route: 065
  3. CHLORAL HYDRATE [Concomitant]
     Active Substance: CHLORAL HYDRATE
     Indication: CEREBRAL PALSY
     Route: 065
  4. TRIHEXYPHENIDYL [Concomitant]
     Active Substance: TRIHEXYPHENIDYL
     Indication: CEREBRAL PALSY
     Route: 065
  5. CLONIDINE. [Concomitant]
     Active Substance: CLONIDINE
     Indication: CEREBRAL PALSY
     Route: 065
  6. DIAZEPAM. [Suspect]
     Active Substance: DIAZEPAM
     Indication: CEREBRAL PALSY
     Route: 065
  7. MORPHINE [Suspect]
     Active Substance: MORPHINE
     Indication: CEREBRAL PALSY
     Route: 065
  8. TETRABENAZINE [Concomitant]
     Active Substance: TETRABENAZINE
     Indication: CEREBRAL PALSY
     Route: 065
  9. BACLOFEN. [Concomitant]
     Active Substance: BACLOFEN
     Indication: CEREBRAL PALSY
     Dosage: HIGH DOSE
     Route: 048
  10. BACLOFEN. [Concomitant]
     Active Substance: BACLOFEN
     Indication: CEREBRAL PALSY
     Dosage: 50 MICROG/ML, TITRATED UP TO 700 MICROG/DAY
     Route: 037

REACTIONS (4)
  - Sedation [Unknown]
  - Gastrointestinal motility disorder [Unknown]
  - Weight increased [Unknown]
  - Respiratory depression [Unknown]
